FAERS Safety Report 6919040-3 (Version None)
Quarter: 2010Q3

REPORT INFORMATION
  Report Type: 
  Country: None (occurrence: None)
  Receive Date: 20100811
  Receipt Date: 20100524
  Transmission Date: 20110219
  Serious: Yes (Hospitalization)
  Sender: FDA-Public Use
  Company Number: PHFR2010IE00554

PATIENT
  Sex: Female

DRUGS (2)
  1. CLOZARIL [Suspect]
     Indication: SCHIZOAFFECTIVE DISORDER
     Dosage: 100 MG NOCTE
     Route: 048
     Dates: start: 20090511
  2. VALPROATE SODIUM [Concomitant]
     Dosage: 300 MG, BID
     Route: 048

REACTIONS (10)
  - BODY TEMPERATURE INCREASED [None]
  - C-REACTIVE PROTEIN INCREASED [None]
  - DYSPNOEA [None]
  - HAEMOPTYSIS [None]
  - LOBAR PNEUMONIA [None]
  - PLATELET COUNT INCREASED [None]
  - PNEUMONIA [None]
  - PRODUCTIVE COUGH [None]
  - THROMBOCYTOSIS [None]
  - WHITE BLOOD CELL COUNT INCREASED [None]
